FAERS Safety Report 9338654 (Version 3)
Quarter: 2013Q3

REPORT INFORMATION
  Report Type: Report from Study
  Country: AU (occurrence: AU)
  Receive Date: 20130610
  Receipt Date: 20130708
  Transmission Date: 20140515
  Serious: Yes (Hospitalization)
  Sender: FDA-Public Use
  Company Number: PHHY2013AU057831

PATIENT
  Age: 81 Year
  Sex: Male

DRUGS (7)
  1. ACLASTA [Suspect]
     Dosage: UNK
     Route: 042
     Dates: start: 20130603
  2. COVERSYL ARGININE [Concomitant]
     Dosage: 10 MG DAILY
     Route: 048
  3. ISOPTIN [Concomitant]
     Dosage: 240 MG DAILY
  4. LIPITOR [Concomitant]
     Dosage: 20 MG DAILY
  5. NATRILIX [Concomitant]
     Dosage: 1.5 MG DAILY
  6. OROXINE [Concomitant]
     Dosage: 50 MCG DAILY
  7. WARFARIN [Concomitant]
     Dosage: 2.5 MG DAILY

REACTIONS (4)
  - Bronchopneumonia [Unknown]
  - Malaise [Recovered/Resolved]
  - Chills [Recovered/Resolved]
  - Subdural haemorrhage [Unknown]
